FAERS Safety Report 12414498 (Version 1)
Quarter: 2016Q2

REPORT INFORMATION
  Report Type: Spontaneous
  Country: US (occurrence: US)
  Receive Date: 20160528
  Receipt Date: 20160528
  Transmission Date: 20160815
  Serious: Yes (Death, Hospitalization, Other)
  Sender: FDA-Public Use
  Company Number: US-AUROBINDO-AUR-APL-2016-07170

PATIENT
  Age: 20 Year
  Sex: Male

DRUGS (2)
  1. FREON 11 [Suspect]
     Active Substance: TRICHLOROMONOFLUOROMETHANE
     Indication: PRODUCT USED FOR UNKNOWN INDICATION
  2. DEXTROMETHORPHAN+PHENYLEPHRINE [Suspect]
     Active Substance: DEXTROMETHORPHAN\PHENYLEPHRINE
     Indication: PRODUCT USED FOR UNKNOWN INDICATION
     Route: 048

REACTIONS (6)
  - Drug abuse [Fatal]
  - Pulseless electrical activity [None]
  - Respiratory arrest [Unknown]
  - Myocardial infarction [None]
  - Brain injury [None]
  - Cardiac arrest [Unknown]
